FAERS Safety Report 15215243 (Version 1)
Quarter: 2018Q3

REPORT INFORMATION
  Report Type: Spontaneous
  Country: AR (occurrence: AR)
  Receive Date: 20180730
  Receipt Date: 20180730
  Transmission Date: 20181010
  Serious: Yes (Other)
  Sender: FDA-Public Use
  Company Number: AR-PFIZER INC-2018303268

PATIENT
  Age: 79 Year
  Sex: Male

DRUGS (1)
  1. INLYTA [Suspect]
     Active Substance: AXITINIB
     Indication: RENAL CANCER
     Dosage: 10 MG, DAILY
     Dates: start: 20180623, end: 20180720

REACTIONS (2)
  - Ophthalmic herpes zoster [Not Recovered/Not Resolved]
  - Conjunctivitis [Recovering/Resolving]

NARRATIVE: CASE EVENT DATE: 201807
